FAERS Safety Report 5411281-X (Version None)
Quarter: 2007Q3

REPORT INFORMATION
  Report Type: 
  Country: None (occurrence: None)
  Receive Date: 20070810
  Receipt Date: 20070731
  Transmission Date: 20080115
  Serious: Yes (Disabling)
  Sender: FDA-Public Use
  Company Number: US-ROCHE-509367

PATIENT
  Age: 38 Year
  Sex: Female

DRUGS (1)
  1. ACCUTANE [Suspect]
     Indication: DRUG USE FOR UNKNOWN INDICATION
     Route: 048
     Dates: start: 20070411, end: 20070702

REACTIONS (3)
  - ARTHRITIS [None]
  - OSTEOPENIA [None]
  - SPINAL COMPRESSION FRACTURE [None]
